FAERS Safety Report 6919565-0 (Version None)
Quarter: 2010Q3

REPORT INFORMATION
  Report Type: 
  Country: None (occurrence: None)
  Receive Date: 20100809
  Receipt Date: 20100729
  Transmission Date: 20110219
  Serious: No
  Sender: FDA-Public Use
  Company Number: 016397

PATIENT
  Age: 70 Year
  Sex: Male

DRUGS (1)
  1. KEPPRA [Suspect]
     Dosage: ORAL

REACTIONS (1)
  - LEUKOPENIA [None]
